FAERS Safety Report 6944427-2 (Version None)
Quarter: 2010Q3

REPORT INFORMATION
  Report Type: 
  Country: None (occurrence: None)
  Receive Date: 20100827
  Receipt Date: 20100817
  Transmission Date: 20110219
  Serious: Yes (Hospitalization)
  Sender: FDA-Public Use
  Company Number: US-JNJFOC-20100806650

PATIENT
  Sex: Male
  Weight: 84.37 kg

DRUGS (2)
  1. FENTANYL CITRATE [Suspect]
     Indication: LYME DISEASE
     Route: 062
  2. FENTANYL CITRATE [Suspect]
     Route: 062

REACTIONS (6)
  - DEVICE FAILURE [None]
  - DRUG DOSE OMISSION [None]
  - INADEQUATE ANALGESIA [None]
  - INTERVERTEBRAL DISC PROTRUSION [None]
  - MALAISE [None]
  - WRONG TECHNIQUE IN DRUG USAGE PROCESS [None]
